FAERS Safety Report 4693983-6 (Version None)
Quarter: 2005Q2

REPORT INFORMATION
  Report Type: 
  Country: None (occurrence: None)
  Receive Date: 20050617
  Receipt Date: 20050311
  Transmission Date: 20051028
  Serious: Yes (Hospitalization)
  Sender: FDA-Public Use
  Company Number: US-MERCK-0503USA02673

PATIENT
  Age: 56 Year
  Sex: Male
  Weight: 91 kg

DRUGS (12)
  1. VIOXX [Suspect]
     Indication: BACK PAIN
     Route: 048
     Dates: start: 19990101, end: 20040101
  2. VIOXX [Suspect]
     Route: 048
     Dates: start: 19990101, end: 20040101
  3. VIOXX [Suspect]
     Route: 048
     Dates: start: 19990101, end: 20040101
  4. VIOXX [Suspect]
     Route: 048
     Dates: start: 19990101, end: 20040101
  5. ASPIRIN [Concomitant]
     Route: 065
     Dates: start: 20010101
  6. DESYREL [Concomitant]
     Route: 065
     Dates: start: 19950101
  7. VIAGRA [Concomitant]
     Route: 065
     Dates: end: 20011223
  8. LORTAB [Concomitant]
     Route: 065
     Dates: end: 20011223
  9. FLEXERIL [Concomitant]
     Route: 065
     Dates: end: 20011223
  10. LIPITOR [Concomitant]
     Route: 065
     Dates: start: 20010101, end: 20040101
  11. BEXTRA [Concomitant]
     Route: 065
     Dates: start: 19990101
  12. CELEBREX [Concomitant]
     Route: 065
     Dates: start: 19990101

REACTIONS (7)
  - BLOOD CHOLESTEROL INCREASED [None]
  - BLOOD TRIGLYCERIDES INCREASED [None]
  - DYSPEPSIA [None]
  - MYOCARDIAL INFARCTION [None]
  - MYOCARDIAL ISCHAEMIA [None]
  - OVERDOSE [None]
  - PAIN [None]
